FAERS Safety Report 11224121 (Version 1)
Quarter: 2015Q2

REPORT INFORMATION
  Report Type: Spontaneous
  Country: US (occurrence: US)
  Receive Date: 20150629
  Receipt Date: 20150629
  Transmission Date: 20150821
  Serious: Yes (Other)
  Sender: FDA-Public Use
  Company Number: US-JNJFOC-20150613727

PATIENT
  Age: 48 Year
  Sex: Female

DRUGS (1)
  1. INVOKANA [Suspect]
     Active Substance: CANAGLIFLOZIN
     Indication: TYPE 2 DIABETES MELLITUS
     Dosage: CUT TABLETS IN HALF TO TAKE ONE-HALF TABLET IN THE MORNING AND ONE-HALF TABLET IN THE EVENING
     Route: 065

REACTIONS (2)
  - Renal pain [Unknown]
  - Wrong technique in drug usage process [Unknown]
